FAERS Safety Report 6119903-5 (Version None)
Quarter: 2009Q1

REPORT INFORMATION
  Report Type: 
  Country: None (occurrence: None)
  Receive Date: 20090311
  Receipt Date: 20090309
  Transmission Date: 20090719
  Serious: Yes (Death)
  Sender: FDA-Public Use
  Company Number: CANAB-09-0084

PATIENT
  Age: 50 Year
  Sex: Female
  Weight: 79 kg

DRUGS (1)
  1. ABRAXANE [Suspect]
     Indication: BREAST CANCER METASTATIC
     Dosage: 440 MG, INTRAVENOUS
     Route: 042
     Dates: start: 20081028, end: 20081028

REACTIONS (11)
  - ASCITES [None]
  - DIALYSIS [None]
  - HEPATIC FAILURE [None]
  - HEPATIC LESION [None]
  - HEPATOMEGALY [None]
  - LOCALISED INTRAABDOMINAL FLUID COLLECTION [None]
  - PLATELET COUNT DECREASED [None]
  - PLEURAL EFFUSION [None]
  - PORTAL VEIN THROMBOSIS [None]
  - RENAL FAILURE [None]
  - VENOOCCLUSIVE LIVER DISEASE [None]
